FAERS Safety Report 10155653 (Version 1)
Quarter: 2014Q2

REPORT INFORMATION
  Report Type: Spontaneous
  Country: NL (occurrence: NL)
  Receive Date: 20140506
  Receipt Date: 20140506
  Transmission Date: 20141212
  Serious: Yes (Life-Threatening)
  Sender: FDA-Public Use
  Company Number: NL-TEVA-479428ISR

PATIENT
  Age: 53 Year
  Sex: Female
  Weight: 62 kg

DRUGS (2)
  1. CAPECITABINE TABLET FO 500MG [Suspect]
     Indication: COLON CANCER
     Dosage: 1650 MG/DAY DURING 14 DAY COURSE. WAS TAKING THE 3RD COURSE
     Route: 048
     Dates: start: 20140131, end: 20140326
  2. OXALIPLATINE INFUUS 1MG/MG [Interacting]
     Indication: COLON CANCER
     Dosage: 220 MG FOR 3 WEEKS, HAD 3 DOSAGES
     Route: 042
     Dates: start: 20140131, end: 20140326

REACTIONS (2)
  - Ventricular fibrillation [Recovering/Resolving]
  - Drug interaction [Recovering/Resolving]
